FAERS Safety Report 18273081 (Version 1)
Quarter: 2020Q3

REPORT INFORMATION
  Report Type: Spontaneous
  Country: FR (occurrence: FR)
  Receive Date: 20200916
  Receipt Date: 20200916
  Transmission Date: 20201103
  Serious: Yes (Hospitalization, Other)
  Sender: FDA-Public Use
  Company Number: FR-SA-2020SA246656

PATIENT

DRUGS (3)
  1. ZALTRAP [Suspect]
     Active Substance: ZIV-AFLIBERCEPT
     Indication: RECTAL NEOPLASM
     Dosage: 4 MG/KG, QCY
     Route: 042
     Dates: start: 20200212, end: 20200624
  2. FLUOROURACIL. [Suspect]
     Active Substance: FLUOROURACIL
     Indication: RECTAL NEOPLASM
     Dosage: 400 MG/M2, QCY
     Route: 042
     Dates: start: 20200212, end: 20200624
  3. IRINOTECAN [Suspect]
     Active Substance: IRINOTECAN
     Indication: RECTAL NEOPLASM
     Dosage: 180 MG/M2, QCY
     Route: 042
     Dates: start: 20200212, end: 20200624

REACTIONS (1)
  - Ischaemic stroke [Recovering/Resolving]

NARRATIVE: CASE EVENT DATE: 20200820
